FAERS Safety Report 16338805 (Version 1)
Quarter: 2019Q2

REPORT INFORMATION
  Report Type: Spontaneous
  Country: US (occurrence: US)
  Receive Date: 20190521
  Receipt Date: 20190521
  Transmission Date: 20190711
  Serious: No
  Sender: FDA-Public Use
  Company Number: US-ANIPHARMA-2018-US-011676

PATIENT
  Age: 82 Year
  Sex: 0
  Weight: 50.8 kg

DRUGS (9)
  1. PANTOPRAZOLE [Concomitant]
     Active Substance: PANTOPRAZOLE
  2. DIVALPROEX SODIUM. [Concomitant]
     Active Substance: DIVALPROEX SODIUM
  3. PROPRANOLOL EXTENDED RELEASE CAPSULES (NON-SPECIFIC) [Suspect]
     Active Substance: PROPRANOLOL HYDROCHLORIDE
     Indication: PRODUCT USED FOR UNKNOWN INDICATION
  4. MIRTAZAPINE. [Concomitant]
     Active Substance: MIRTAZAPINE
  5. LIOTHYRONINE [Concomitant]
     Active Substance: LIOTHYRONINE
  6. MODAFINIL. [Concomitant]
     Active Substance: MODAFINIL
  7. CARVEDILOL. [Suspect]
     Active Substance: CARVEDILOL
  8. GABAPENTIN. [Concomitant]
     Active Substance: GABAPENTIN
  9. ROPINIROLE. [Concomitant]
     Active Substance: ROPINIROLE

REACTIONS (1)
  - Abnormal behaviour [Unknown]
